FAERS Safety Report 10539888 (Version 2)
Quarter: 2014Q4

REPORT INFORMATION
  Report Type: Spontaneous
  Country: BR (occurrence: BR)
  Receive Date: 20141024
  Receipt Date: 20141024
  Transmission Date: 20150529
  Serious: Yes (Death)
  Sender: FDA-Public Use
  Company Number: BR-PFIZER INC-2014003158

PATIENT
  Age: 59 Year
  Sex: Male

DRUGS (2)
  1. LEVOID [Concomitant]
     Active Substance: LEVOTHYROXINE
  2. SUTENT [Suspect]
     Active Substance: SUNITINIB MALATE
     Indication: METASTATIC RENAL CELL CARCINOMA
     Dosage: 50 MG (ONE CAPSULE), 1X/DAY CYCLE 4 X 2
     Route: 048
     Dates: start: 20130305

REACTIONS (6)
  - Rash [Unknown]
  - Malaise [Unknown]
  - Death [Fatal]
  - Skin exfoliation [Unknown]
  - Muscle fatigue [Unknown]
  - Pain in extremity [Unknown]

NARRATIVE: CASE EVENT DATE: 20141014
